FAERS Safety Report 20907136 (Version 2)
Quarter: 2022Q3

REPORT INFORMATION
  Report Type: Spontaneous
  Country: US (occurrence: US)
  Receive Date: 20220602
  Receipt Date: 20220712
  Transmission Date: 20221027
  Serious: No
  Sender: FDA-Public Use
  Company Number: US-JNJFOC-20220559030

PATIENT

DRUGS (10)
  1. TOPAMAX [Suspect]
     Active Substance: TOPIRAMATE
     Indication: Product used for unknown indication
     Route: 048
  2. NAPROXEN [Suspect]
     Active Substance: NAPROXEN
  3. NORTRIPTYLINE [Suspect]
     Active Substance: NORTRIPTYLINE
  4. SUMATRIPTAN [Suspect]
     Active Substance: SUMATRIPTAN
  5. RIZATRIPTAN [Suspect]
     Active Substance: RIZATRIPTAN
  6. GABAPENTIN [Suspect]
     Active Substance: GABAPENTIN
  7. EMGALITY [Suspect]
     Active Substance: GALCANEZUMAB-GNLM
  8. PROPRANOLOL [Suspect]
     Active Substance: PROPRANOLOL HYDROCHLORIDE
  9. ZOLMITRIPTAN [Suspect]
     Active Substance: ZOLMITRIPTAN
  10. MEMANTINE [Suspect]
     Active Substance: MEMANTINE

REACTIONS (1)
  - Drug ineffective [Unknown]
